FAERS Safety Report 5657560-2 (Version None)
Quarter: 2008Q1

REPORT INFORMATION
  Report Type: 
  Country: None (occurrence: None)
  Receive Date: 20080310
  Receipt Date: 20080227
  Transmission Date: 20080703
  Serious: Yes (Hospitalization, Other)
  Sender: FDA-Public Use
  Company Number: PHHY2008JP01511

PATIENT
  Age: 23 Year
  Sex: Female
  Weight: 67 kg

DRUGS (3)
  1. CIFLOSIN [Suspect]
     Indication: FRUSTRATION
     Dosage: 200 MG 4 TABLET AT ONE TIME
     Route: 048
     Dates: start: 20080207, end: 20080207
  2. VOLTAREN [Suspect]
     Indication: FRUSTRATION
     Dosage: 500 MG/ DAY
     Route: 048
  3. VOLTAREN [Suspect]
     Dosage: 250 MG/ DAY
     Route: 048
     Dates: start: 20080207, end: 20080207

REACTIONS (5)
  - CAESAREAN SECTION [None]
  - DRUG EXPOSURE DURING PREGNANCY [None]
  - HAEMORRHAGE [None]
  - MATERNAL DRUGS AFFECTING FOETUS [None]
  - OVERDOSE [None]
